FAERS Safety Report 5269463-6 (Version None)
Quarter: 2007Q1

REPORT INFORMATION
  Report Type: 
  Country: None (occurrence: None)
  Receive Date: 20070314
  Receipt Date: 20070306
  Transmission Date: 20070707
  Serious: Yes (Life-Threatening)
  Sender: FDA-Public Use
  Company Number: 237757

PATIENT
  Age: 65 Year
  Sex: Female

DRUGS (5)
  1. RITUXAN [Suspect]
     Indication: NON-HODGKIN'S LYMPHOMA
  2. ETOPOSIDE [Concomitant]
  3. METHYLPREDNISOLONE [Concomitant]
  4. CYTARABINE [Concomitant]
  5. CISPLATIN [Concomitant]

REACTIONS (1)
  - GASTRIC CANCER [None]
